FAERS Safety Report 6838122-8 (Version None)
Quarter: 2010Q3

REPORT INFORMATION
  Report Type: 
  Country: None (occurrence: None)
  Receive Date: 20100713
  Receipt Date: 20070531
  Transmission Date: 20110219
  Serious: No
  Sender: FDA-Public Use
  Company Number: US-PFIZER INC-2007045786

PATIENT
  Age: 68 Year
  Sex: Female
  Weight: 80.9 kg

DRUGS (9)
  1. CHANTIX [Suspect]
     Indication: SMOKING CESSATION THERAPY
     Dates: start: 20070501, end: 20070526
  2. OMEPRAZOLE [Concomitant]
  3. PROZAC [Concomitant]
  4. LASIX [Concomitant]
  5. POTASSIUM [Concomitant]
  6. TRAMADOL [Concomitant]
  7. METHOCARBAMOL [Concomitant]
  8. DETROL [Concomitant]
  9. VITAMINS [Concomitant]

REACTIONS (4)
  - HYPERSENSITIVITY [None]
  - IRRITABILITY [None]
  - RASH [None]
  - URTICARIA [None]
